FAERS Safety Report 25031052 (Version 1)
Quarter: 2025Q1

REPORT INFORMATION
  Report Type: Spontaneous
  Country: US (occurrence: US)
  Receive Date: 20250303
  Receipt Date: 20250303
  Transmission Date: 20250409
  Serious: Yes (Life-Threatening, Other)
  Sender: CIPLA
  Company Number: US-CIPLA LTD.-2025US02455

PATIENT

DRUGS (2)
  1. CYCLOPHOSPHAMIDE [Suspect]
     Active Substance: CYCLOPHOSPHAMIDE
     Indication: Plasma cell myeloma refractory
     Route: 065
  2. PENTOSTATIN [Suspect]
     Active Substance: PENTOSTATIN
     Indication: Plasma cell myeloma refractory
     Route: 065

REACTIONS (6)
  - Neutrophil count [Unknown]
  - Ejection fraction decreased [Unknown]
  - Hypertension [Unknown]
  - Bacterial infection [Unknown]
  - Hypoxia [Unknown]
  - Diarrhoea [Unknown]
